FAERS Safety Report 22621413 (Version 1)
Quarter: 2023Q2

REPORT INFORMATION
  Report Type: Spontaneous
  Country: US (occurrence: None)
  Receive Date: 20230618
  Receipt Date: 20230618
  Transmission Date: 20230722
  Serious: Yes (Disabling)
  Sender: FDA-Public Use
  Company Number: None

PATIENT
  Age: 67 Year
  Sex: Female
  Weight: 137.25 kg

DRUGS (2)
  1. OZEMPIC [Suspect]
     Active Substance: SEMAGLUTIDE
     Indication: Glucose tolerance impaired
     Dosage: OTHER QUANTITY : 3 INJECTION(S);?OTHER FREQUENCY : ONCE A WEEK;?
     Route: 058
     Dates: start: 20230520, end: 20230610
  2. OZEMPIC [Suspect]
     Active Substance: SEMAGLUTIDE
     Indication: Obesity

REACTIONS (14)
  - Peripheral swelling [None]
  - Peripheral swelling [None]
  - Diarrhoea [None]
  - Abdominal pain [None]
  - Vision blurred [None]
  - Nausea [None]
  - Asthenia [None]
  - Pyrexia [None]
  - Frequent bowel movements [None]
  - Constipation [None]
  - Abdominal pain lower [None]
  - Dizziness [None]
  - Diarrhoea [None]
  - Dizziness [None]

NARRATIVE: CASE EVENT DATE: 20230528
